FAERS Safety Report 9076917 (Version 1)
Quarter: 2013Q1

REPORT INFORMATION
  Report Type: Report from Study
  Country: US (occurrence: US)
  Receive Date: 20130129
  Receipt Date: 20130129
  Transmission Date: 20140127
  Serious: No
  Sender: FDA-Public Use
  Company Number: US-ABBOTT-12P-163-0943565-00

PATIENT
  Age: 63 Year
  Sex: Female

DRUGS (12)
  1. HUMIRA 40 MG/0.8 ML PEN [Suspect]
     Indication: CROHN^S DISEASE
     Dates: start: 20120531, end: 20120531
  2. HUMIRA 40 MG/0.8 ML PEN [Suspect]
     Dates: start: 20120601, end: 20120601
  3. HUMIRA 40 MG/0.8 ML PEN [Suspect]
  4. PENTASA [Concomitant]
     Indication: CROHN^S DISEASE
     Dosage: 250 MG X 4 TABLETS FOUR TIMES DAILY
     Route: 048
  5. AZATHIOPRINE [Concomitant]
     Indication: CROHN^S DISEASE
     Dosage: 50MG X 3 TABLETS IN MORNING
     Route: 048
  6. METOPROLOL [Concomitant]
     Indication: HYPERTENSION
     Route: 048
  7. METOPROLOL [Concomitant]
  8. LISINOPRIL [Concomitant]
     Indication: HYPERTENSION
     Dosage: 50MG DAILY
     Route: 048
  9. IRON [Concomitant]
     Indication: ANAEMIA
  10. OMEPRAZOLE [Concomitant]
     Indication: GASTROOESOPHAGEAL REFLUX DISEASE
     Dosage: IN THE MORNING
  11. SIMVASTATIN [Concomitant]
     Indication: BLOOD CHOLESTEROL INCREASED
     Dosage: AT BEDTIME
     Route: 048
  12. PROMETHAZINE [Concomitant]
     Indication: NAUSEA
     Dosage: EVERY 6 HOURS AS NEEDED
     Route: 048

REACTIONS (8)
  - Gastric disorder [Recovered/Resolved]
  - Diarrhoea [Recovered/Resolved]
  - Abdominal pain [Recovered/Resolved]
  - Asthenia [Recovering/Resolving]
  - Pain in extremity [Recovering/Resolving]
  - Diarrhoea [Recovering/Resolving]
  - Abdominal pain [Recovering/Resolving]
  - Anaemia [Recovering/Resolving]
